FAERS Safety Report 5794857-X (Version None)
Quarter: 2008Q2

REPORT INFORMATION
  Report Type: 
  Country: None (occurrence: None)
  Receive Date: 20080627
  Receipt Date: 20080627
  Transmission Date: 20081010
  Serious: Yes (Death)
  Sender: FDA-Public Use
  Company Number: None

PATIENT
  Age: 33 Year
  Sex: Female

DRUGS (3)
  1. ROCEPHIN [Suspect]
     Indication: BRONCHITIS
     Dosage: ONCE, INTRAMUSCULAR
     Route: 030
     Dates: start: 20080515
  2. ANTIBIOTIC NOS (UNK) [Suspect]
     Indication: BRONCHITIS
     Dosage: ORAL
     Route: 048
     Dates: start: 20080515
  3. MUCINEX [Suspect]
     Indication: BRONCHITIS
     Dosage: ORAL
     Route: 048
     Dates: start: 20080515

REACTIONS (2)
  - BRUXISM [None]
  - HYPERSENSITIVITY [None]
